FAERS Safety Report 8087988-5 (Version None)
Quarter: 2012Q1

REPORT INFORMATION
  Report Type: 
  Country: None (occurrence: None)
  Receive Date: 20120131
  Receipt Date: 20120117
  Transmission Date: 20120608
  Serious: Yes (Other)
  Sender: FDA-Public Use
  Company Number: BR-AMGEN-BRASP2012004503

PATIENT
  Age: 62 Year
  Sex: Female
  Weight: 51 kg

DRUGS (12)
  1. METOPROLOL SUCCINATE [Concomitant]
     Dosage: UNK
  2. SOMALGIN [Concomitant]
     Dosage: UNK
  3. ALPRAZOLAM [Concomitant]
     Dosage: UNK
  4. TECNOMET                           /00113801/ [Concomitant]
     Dosage: UNK
  5. ENDOFOLIN [Concomitant]
     Dosage: UNK
  6. ATACAND [Concomitant]
     Dosage: 12.5 MG, UNK
  7. LIPITOR [Concomitant]
     Dosage: UNK
  8. VASTAREL [Concomitant]
     Dosage: UNK
  9. OMEPRAZOLE [Concomitant]
     Dosage: UNK
  10. ENBREL [Suspect]
     Indication: RHEUMATOID ARTHRITIS
     Dosage: 50 MG, EVERY 10 DAYS
     Route: 058
     Dates: start: 20100301
  11. LEVOTHYROXINE SODIUM [Concomitant]
     Dosage: UNK
  12. LEXAPRO [Concomitant]
     Dosage: UNK

REACTIONS (5)
  - GENITAL HERPES [None]
  - EMOTIONAL DISORDER [None]
  - INJECTION SITE HAEMORRHAGE [None]
  - VENOUS OCCLUSION [None]
  - INJECTION SITE HAEMATOMA [None]
